FAERS Safety Report 12327126 (Version 1)
Quarter: 2016Q2

REPORT INFORMATION
  Report Type: Spontaneous
  Country: GB (occurrence: GB)
  Receive Date: 20160503
  Receipt Date: 20160503
  Transmission Date: 20160815
  Serious: Yes (Hospitalization)
  Sender: FDA-Public Use
  Company Number: GB-ACTAVIS-2016-08767

PATIENT
  Age: 41 Year

DRUGS (5)
  1. ALCOHOL. [Concomitant]
     Active Substance: ALCOHOL
     Indication: SUBSTANCE ABUSE
     Dosage: UNK (ONGOING)
     Route: 065
  2. HEROIN [Concomitant]
     Active Substance: DIACETYLMORPHINE
     Indication: SUBSTANCE ABUSE
     Dosage: UNK UNK, UNKNOWN (ONGOING)
     Route: 065
  3. GABAPENTIN (UNKNOWN) [Suspect]
     Active Substance: GABAPENTIN
     Indication: PRODUCT USED FOR UNKNOWN INDICATION
     Dosage: 300 MG, TID
     Route: 048
  4. QUETIAPINE (UNKNOWN) [Suspect]
     Active Substance: QUETIAPINE
     Indication: PRODUCT USED FOR UNKNOWN INDICATION
     Dosage: 400 MG, QHS (AT NIGHT.)
     Route: 048
     Dates: start: 201507
  5. METHADONE [Concomitant]
     Active Substance: METHADONE HYDROCHLORIDE
     Indication: PRODUCT USED FOR UNKNOWN INDICATION
     Dosage: 45 ML, DAILY
     Route: 048

REACTIONS (1)
  - Pancreatitis [Unknown]
